FAERS Safety Report 19481854 (Version 1)
Quarter: 2021Q2

REPORT INFORMATION
  Report Type: Spontaneous
  Country: US (occurrence: US)
  Receive Date: 20210630
  Receipt Date: 20210630
  Transmission Date: 20210717
  Serious: No
  Sender: FDA-Public Use
  Company Number: None

PATIENT
  Age: 53 Year
  Sex: Male

DRUGS (1)
  1. CAPECITABINE 500 MG [Suspect]
     Active Substance: CAPECITABINE
     Indication: BREAST CANCER FEMALE
     Route: 048
     Dates: start: 20210402

REACTIONS (11)
  - Hypotension [None]
  - Therapy change [None]
  - Pulmonary embolism [None]
  - Abdominal pain [None]
  - Therapy interrupted [None]
  - Diarrhoea [None]
  - Acute respiratory failure [None]
  - Malignant neoplasm progression [None]
  - Treatment noncompliance [None]
  - Pleural effusion [None]
  - Anaemia [None]

NARRATIVE: CASE EVENT DATE: 202105
